FAERS Safety Report 9773094 (Version 1)
Quarter: 2013Q4

REPORT INFORMATION
  Report Type: Spontaneous
  Country: HU (occurrence: HU)
  Receive Date: 20131219
  Receipt Date: 20131219
  Transmission Date: 20140711
  Serious: Yes (Hospitalization)
  Sender: FDA-Public Use
  Company Number: PHHY2013HU146814

PATIENT
  Age: 49 Year
  Sex: Male

DRUGS (2)
  1. 5-FLUOROURACIL [Suspect]
     Indication: CHEMOTHERAPY
     Route: 042
  2. CARBOPLATIN [Concomitant]
     Indication: CHEMOTHERAPY

REACTIONS (2)
  - Atrial fibrillation [Unknown]
  - Prinzmetal angina [Unknown]
